FAERS Safety Report 7101853-9 (Version None)
Quarter: 2010Q4

REPORT INFORMATION
  Report Type: 
  Country: None (occurrence: None)
  Receive Date: 20101115
  Receipt Date: 20101109
  Transmission Date: 20110411
  Serious: Yes (Hospitalization)
  Sender: FDA-Public Use
  Company Number: US-ELI_LILLY_AND_COMPANY-US201010005715

PATIENT
  Sex: Male
  Weight: 97.506 kg

DRUGS (19)
  1. PRASUGREL HYDROCHLORIDE [Suspect]
     Indication: ACUTE CORONARY SYNDROME
     Dosage: UNK, UNK
     Dates: start: 20081028
  2. ASPIRIN [Concomitant]
     Dosage: 325 MG, DAILY (1/D)
     Dates: start: 20070409, end: 20081022
  3. ASPIRIN [Concomitant]
     Dosage: 325 MG, DAILY (1/D)
     Dates: start: 20081022
  4. ASPIRIN [Concomitant]
     Dosage: 162 MG, DAILY (1/D)
     Dates: start: 20100720
  5. CLOPIDOGREL [Concomitant]
     Dosage: 75 MG, UNK
  6. METOPROLOL TARTRATE [Concomitant]
     Indication: HYPERTENSION
     Dates: start: 20070702
  7. PAROXETINE HCL [Concomitant]
     Indication: PROPHYLAXIS
     Dates: start: 20070702
  8. METFORMIN HCL [Concomitant]
     Indication: TYPE 2 DIABETES MELLITUS
     Dates: start: 20060915
  9. LISINOPRIL [Concomitant]
     Indication: HYPERCHOLESTEROLAEMIA
     Dates: start: 20080915
  10. LIPITOR [Concomitant]
     Indication: HYPERCHOLESTEROLAEMIA
     Dates: start: 20080429
  11. ISOSORBIDE MONONITRATE [Concomitant]
     Indication: ANGINA PECTORIS
     Dates: start: 20081022
  12. FUROSEMIDE [Concomitant]
     Indication: PROPHYLAXIS
     Dates: start: 20081022
  13. FINASTERIDE [Concomitant]
     Indication: BENIGN PROSTATIC HYPERPLASIA
     Dates: start: 20081014
  14. AMLODIPINE BESYLATE [Concomitant]
     Indication: CARDIAC FAILURE CHRONIC
     Dates: start: 20081022
  15. NEXIUM [Concomitant]
     Indication: DYSPEPSIA
     Dates: start: 20051215
  16. NITROGLYCERIN [Concomitant]
     Indication: ANGINA PECTORIS
     Dates: start: 20051215
  17. FLUOROURACIL [Concomitant]
     Indication: SQUAMOUS CELL CARCINOMA OF SKIN
     Dates: start: 20091130
  18. BRIMONIDINE TARTRATE [Concomitant]
     Indication: GLAUCOMA
     Dates: start: 20080101
  19. PAXIL [Concomitant]
     Indication: DEPRESSION
     Dates: start: 20100121

REACTIONS (10)
  - DEPRESSION [None]
  - DIABETIC COMPLICATION [None]
  - FALL [None]
  - FEMORAL NECK FRACTURE [None]
  - GYNAECOMASTIA [None]
  - HYPOXIA [None]
  - NEPHRITIS [None]
  - PERIPHERAL ARTERIAL OCCLUSIVE DISEASE [None]
  - PNEUMONIA [None]
  - SQUAMOUS CELL CARCINOMA [None]
